FAERS Safety Report 15271401 (Version 1)
Quarter: 2018Q3

REPORT INFORMATION
  Report Type: Spontaneous
  Country: BR (occurrence: BR)
  Receive Date: 20180813
  Receipt Date: 20180813
  Transmission Date: 20181010
  Serious: Yes (Disabling)
  Sender: FDA-Public Use
  Company Number: BR-JUBILANT CADISTA PHARMACEUTICALS-2018JUB00324

PATIENT
  Sex: Female

DRUGS (1)
  1. AMANTADINE HYDROCHLORIDE. [Suspect]
     Active Substance: AMANTADINE HYDROCHLORIDE
     Indication: DYSKINESIA
     Route: 065

REACTIONS (2)
  - Myoclonus [Recovered/Resolved]
  - Speech disorder [Recovered/Resolved]
